FAERS Safety Report 20705465 (Version 1)
Quarter: 2022Q2

REPORT INFORMATION
  Report Type: Spontaneous
  Country: US (occurrence: None)
  Receive Date: 20220413
  Receipt Date: 20220413
  Transmission Date: 20220721
  Serious: Yes (Death)
  Sender: FDA-Public Use
  Company Number: None

PATIENT
  Age: 73 Year
  Sex: Female

DRUGS (7)
  1. REPATHA [Suspect]
     Active Substance: EVOLOCUMAB
     Dosage: OTHER FREQUENCY : Q14DAYS;?
     Route: 048
  2. ASPIRIN [Concomitant]
     Active Substance: ASPIRIN
  3. CARBAMAZEPINE [Concomitant]
     Active Substance: CARBAMAZEPINE
  4. EZETIMIBE [Concomitant]
     Active Substance: EZETIMIBE
  5. IRON TABLETS [Concomitant]
  6. LISINOPRIL [Concomitant]
     Active Substance: LISINOPRIL
  7. METOPROLOL ER SUCCINATE TAB [Concomitant]

REACTIONS (1)
  - Death [None]

NARRATIVE: CASE EVENT DATE: 20220411
